FAERS Safety Report 7424423-1 (Version None)
Quarter: 2011Q2

REPORT INFORMATION
  Report Type: 
  Country: None (occurrence: None)
  Receive Date: 20110419
  Receipt Date: 20100721
  Transmission Date: 20111010
  Serious: No
  Sender: FDA-Public Use
  Company Number: US-ABBOTT-10P-163-0659344-00

PATIENT
  Sex: Female
  Weight: 40.86 kg

DRUGS (15)
  1. ZEMPLAR [Suspect]
     Dates: end: 20100715
  2. VENOFER [Concomitant]
     Indication: DIALYSIS
  3. CALCIUM ACETATE [Concomitant]
     Indication: DIALYSIS
  4. ESTRACE [Concomitant]
     Indication: HORMONE REPLACEMENT THERAPY
  5. LORZAPAM [Concomitant]
     Indication: PRODUCT USED FOR UNKNOWN INDICATION
  6. TUMS [Concomitant]
     Indication: RENAL FAILURE CHRONIC
  7. ZEMPLAR [Suspect]
     Dates: start: 20100715
  8. ZEMPLAR [Suspect]
     Indication: HYPERPARATHYROIDISM
     Dates: start: 20100716, end: 20100719
  9. CLONIDINE [Concomitant]
     Indication: HYPERTENSION
  10. EPOGEN [Concomitant]
     Indication: ANAEMIA
  11. NEPHROCAPS [Concomitant]
     Indication: RENAL FAILURE CHRONIC
  12. NEXIUM [Concomitant]
     Indication: PRODUCT USED FOR UNKNOWN INDICATION
  13. SORBITOL [Concomitant]
     Indication: PRODUCT USED FOR UNKNOWN INDICATION
  14. HEPARIN [Concomitant]
     Indication: DIALYSIS
  15. HYDROCODONE BITARTRATE AND ACETAMINOPHEN [Concomitant]
     Indication: PAIN

REACTIONS (3)
  - MUSCLE SPASMS [None]
  - OVERDOSE [None]
  - DRUG DISPENSING ERROR [None]
